FAERS Safety Report 11110951 (Version 2)
Quarter: 2015Q2

REPORT INFORMATION
  Report Type: Spontaneous
  Country: US (occurrence: US)
  Receive Date: 20150513
  Receipt Date: 20150522
  Transmission Date: 20150821
  Serious: No
  Sender: FDA-Public Use
  Company Number: US-PFIZER INC-2015156599

PATIENT
  Age: 50 Year
  Sex: Female
  Weight: 131.52 kg

DRUGS (2)
  1. NEURONTIN [Suspect]
     Active Substance: GABAPENTIN
     Indication: NEURALGIA
     Dosage: 200 MG, UNK
     Dates: start: 2010
  2. NEURONTIN [Suspect]
     Active Substance: GABAPENTIN
     Indication: SPINAL CORD INJURY
     Dosage: 600 MG, UNK
     Dates: end: 201011

REACTIONS (9)
  - Hot flush [Unknown]
  - Disorientation [Unknown]
  - Balance disorder [Unknown]
  - Condition aggravated [Unknown]
  - Paraesthesia [Unknown]
  - Product use issue [Unknown]
  - Pain [Unknown]
  - Feeling hot [Unknown]
  - Neuralgia [Unknown]
